FAERS Safety Report 18749117 (Version 11)
Quarter: 2022Q4

REPORT INFORMATION
  Report Type: Report from Study
  Country: GB (occurrence: GB)
  Receive Date: 20210116
  Receipt Date: 20221124
  Transmission Date: 20230113
  Serious: Yes (Death, Hospitalization, Other)
  Sender: FDA-Public Use
  Company Number: GB-CELLTRION INC.-2019GB026653

PATIENT

DRUGS (247)
  1. TRASTUZUMAB [Suspect]
     Active Substance: TRASTUZUMAB
     Indication: Breast cancer
     Dosage: 525 MILLIGRAM, Q3WK, LOADING DOSE, KANJINTI WAS LAUNCHED ON 17/MAY/2018
     Route: 042
     Dates: start: 20170524, end: 20170524
  2. TRASTUZUMAB [Suspect]
     Active Substance: TRASTUZUMAB
     Indication: HER2 positive breast cancer
     Dosage: 525 MILLIGRAM, Q3WK, LOADING DOSE, KANJINTI WAS LAUNCHED ON 17/MAY/2018
     Route: 042
     Dates: start: 20170524, end: 20170524
  3. TRASTUZUMAB [Suspect]
     Active Substance: TRASTUZUMAB
     Indication: Breast cancer metastatic
     Dosage: 525 MILLIGRAM, Q3WK, LOADING DOSE, KANJINTI WAS LAUNCHED ON 17/MAY/2018 (CUMULATIVE DOSE TO FIRST RE
     Route: 042
     Dates: start: 20170524, end: 20170524
  4. TRASTUZUMAB [Suspect]
     Active Substance: TRASTUZUMAB
     Dosage: 400 MILLIGRAM, Q3WK
     Route: 042
     Dates: start: 20170614, end: 20180425
  5. TRASTUZUMAB [Suspect]
     Active Substance: TRASTUZUMAB
     Dosage: 400 MILLIGRAM, Q3WK
     Route: 042
     Dates: start: 20170614, end: 20180425
  6. TRASTUZUMAB [Suspect]
     Active Substance: TRASTUZUMAB
     Dosage: 400 MILLIGRAM, Q3WK (CUMULATIVE DOSE TO FIRST REACTION: 11417 MG)
     Route: 042
     Dates: start: 20170614, end: 20180425
  7. TRASTUZUMAB [Suspect]
     Active Substance: TRASTUZUMAB
     Dosage: 400 MILLIGRAM, Q3WK
     Route: 042
     Dates: start: 20180516, end: 20190327
  8. TRASTUZUMAB [Suspect]
     Active Substance: TRASTUZUMAB
     Dosage: 378 MG, Q3WEEKS; 378 MILLIGRAM
     Route: 042
     Dates: start: 20180516, end: 20190327
  9. TRASTUZUMAB [Suspect]
     Active Substance: TRASTUZUMAB
     Dosage: 378 MG, Q3WEEKS; 378 MILLIGRAM
     Route: 042
     Dates: start: 20180516, end: 20190327
  10. TRASTUZUMAB [Suspect]
     Active Substance: TRASTUZUMAB
     Dosage: 378 MG, Q3WEEKS; 378 MILLIGRAM
     Route: 042
     Dates: start: 20180516, end: 20190327
  11. TRASTUZUMAB [Suspect]
     Active Substance: TRASTUZUMAB
     Dosage: 378 MILLIGRAM, Q3WK, 293 (CUMULATIVE DOSE TO FIRST REACTION: 11417 MG)
     Route: 041
     Dates: start: 20180516, end: 20190327
  12. TRASTUZUMAB [Suspect]
     Active Substance: TRASTUZUMAB
     Dosage: 160 MILLIGRAM; EVERY 3 WEEKS
     Route: 042
     Dates: start: 20190829
  13. TRASTUZUMAB [Suspect]
     Active Substance: TRASTUZUMAB
     Dosage: 160 MILLIGRAM; EVERY 3 WEEKS
     Route: 042
     Dates: start: 20190829
  14. TRASTUZUMAB [Suspect]
     Active Substance: TRASTUZUMAB
     Dosage: 160 MILLIGRAM; EVERY 3 WEEKS
     Route: 042
     Dates: start: 20190829
  15. TRASTUZUMAB [Suspect]
     Active Substance: TRASTUZUMAB
     Dosage: 200 MILLIGRAM; EVERY 3 WEEKS
     Route: 042
     Dates: start: 20190627, end: 20190718
  16. TRASTUZUMAB [Suspect]
     Active Substance: TRASTUZUMAB
     Dosage: 200 MILLIGRAM; EVERY 3 WEEKS
     Route: 042
     Dates: start: 20190627, end: 20190718
  17. TRASTUZUMAB [Suspect]
     Active Substance: TRASTUZUMAB
     Dosage: 200 MILLIGRAM; EVERY 3 WEEKS
     Route: 042
     Dates: start: 20190627, end: 20190718
  18. TRASTUZUMAB [Suspect]
     Active Substance: TRASTUZUMAB
     Dosage: 240 MILLIGRAM; EVERY 3 WEEKS
     Route: 042
     Dates: start: 20190427, end: 20190606
  19. TRASTUZUMAB [Suspect]
     Active Substance: TRASTUZUMAB
     Dosage: 240 MILLIGRAM; EVERY 3 WEEKS
     Route: 042
     Dates: start: 20190427, end: 20190606
  20. TRASTUZUMAB [Suspect]
     Active Substance: TRASTUZUMAB
     Dosage: 240 MILLIGRAM; EVERY 3 WEEKS
     Route: 042
     Dates: start: 20190427, end: 20190606
  21. TRASTUZUMAB [Suspect]
     Active Substance: TRASTUZUMAB
     Dosage: 283.5 MILLIGRAM  DOSE FORM: 230
     Route: 041
     Dates: start: 20171003, end: 20180502
  22. TRASTUZUMAB [Suspect]
     Active Substance: TRASTUZUMAB
     Dosage: 283.5 MILLIGRAM  DOSE FORM: 230
     Route: 041
     Dates: start: 20171003, end: 20180502
  23. TRASTUZUMAB [Suspect]
     Active Substance: TRASTUZUMAB
     Dosage: 315 MILLIGRAM  DOSE FORM: 230
     Route: 041
     Dates: start: 20170711, end: 20170801
  24. TRASTUZUMAB [Suspect]
     Active Substance: TRASTUZUMAB
     Dosage: 315 MILLIGRAM  DOSE FORM: 230
     Route: 041
     Dates: start: 20170711, end: 20170801
  25. TRASTUZUMAB [Suspect]
     Active Substance: TRASTUZUMAB
     Dosage: 420  MILLIGRAM  DOSE FORM: 230
     Route: 041
     Dates: start: 20170619, end: 20170619
  26. TRASTUZUMAB [Suspect]
     Active Substance: TRASTUZUMAB
     Dosage: 420  MILLIGRAM  DOSE FORM: 230
     Route: 041
     Dates: start: 20170619, end: 20170619
  27. TRASTUZUMAB [Suspect]
     Active Substance: TRASTUZUMAB
     Dosage: 294 MILLIGRAM  DOSE FORM: 230
     Route: 041
     Dates: start: 20170822, end: 20170916
  28. TRASTUZUMAB [Suspect]
     Active Substance: TRASTUZUMAB
     Dosage: 294 MILLIGRAM  DOSE FORM: 230
     Route: 041
     Dates: start: 20170822, end: 20170916
  29. TRASTUZUMAB [Suspect]
     Active Substance: TRASTUZUMAB
     Dosage: 283.5 MILLIGRAM  DOSE FORM: 230
     Route: 041
     Dates: start: 20180709, end: 20180820
  30. TRASTUZUMAB [Suspect]
     Active Substance: TRASTUZUMAB
     Dosage: 283.5 MILLIGRAM  DOSE FORM: 230
     Route: 041
     Dates: start: 20180709, end: 20180820
  31. TRASTUZUMAB [Suspect]
     Active Substance: TRASTUZUMAB
     Dosage: 388.5  MILLIGRAM  DOSE FORM: 230
     Route: 041
     Dates: start: 20180618, end: 20180618
  32. TRASTUZUMAB [Suspect]
     Active Substance: TRASTUZUMAB
     Dosage: 388.5  MILLIGRAM  DOSE FORM: 230
     Route: 041
     Dates: start: 20180618, end: 20180618
  33. TRASTUZUMAB [Suspect]
     Active Substance: TRASTUZUMAB
     Dosage: 420  MILLIGRAM
     Route: 042
     Dates: start: 20170619, end: 20170619
  34. TRASTUZUMAB [Suspect]
     Active Substance: TRASTUZUMAB
     Dosage: 420  MILLIGRAM
     Route: 042
     Dates: start: 20170619, end: 20170619
  35. TRASTUZUMAB [Suspect]
     Active Substance: TRASTUZUMAB
     Dosage: 420  MILLIGRAM, EVERY 3 WEEKS CUMULATIVE DOSE TO FIRST REACTION: 859.999999 MG
     Route: 042
     Dates: start: 20170619, end: 20170619
  36. TRASTUZUMAB [Suspect]
     Active Substance: TRASTUZUMAB
     Dosage: 420  MILLIGRAM, EVERY 3 WEEKS CUMULATIVE DOSE TO FIRST REACTION: 859.999999 MG
     Route: 042
     Dates: start: 20170619, end: 20170619
  37. DOCETAXEL [Suspect]
     Active Substance: DOCETAXEL
     Indication: Breast cancer
     Dosage: 130 MILLIGRAM, Q3WK (CUMULATIVE DOSE TO FIRST REACTION: 130 MG); DOSR FORM: 120
     Route: 042
     Dates: start: 20170525, end: 20170525
  38. DOCETAXEL [Suspect]
     Active Substance: DOCETAXEL
     Indication: HER2 positive breast cancer
     Dosage: UNK
  39. DOCETAXEL [Suspect]
     Active Substance: DOCETAXEL
     Indication: Breast cancer metastatic
     Dosage: 108 MILLIGRAM, EVERY 3 WEEKS,  (CUMULATIVE DOSE TO FIRST REACTION: 8455.071 MG)
     Route: 042
     Dates: start: 20170620, end: 20170801
  40. DOCETAXEL [Suspect]
     Active Substance: DOCETAXEL
     Dosage: 108 MILLIGRAM EVERY 3 WEEKS(CUMULATIVE DOSE TO FIRST REACTION: 8455.071 MG)
     Route: 042
     Dates: start: 20170620, end: 20170801
  41. DOCETAXEL [Suspect]
     Active Substance: DOCETAXEL
     Dosage: 88 MILLIGRAM, EVERY 3 WEEKS, CUMULATIVE DOSE TO FIRST REACTION: 6625.3174 M
     Route: 042
     Dates: start: 20170822, end: 20171003
  42. DOCETAXEL [Suspect]
     Active Substance: DOCETAXEL
     Dosage: 88 MILLIGRAM, EVERY 3 WEEKS, CUMULATIVE DOSE TO FIRST REACTION: 6625.3174 M
     Route: 042
     Dates: start: 20170822, end: 20171003
  43. DOCETAXEL [Suspect]
     Active Substance: DOCETAXEL
     Dosage: 88 MILLIGRAM, EVERY 3 WEEKS, CUMULATIVE DOSE TO FIRST REACTION: 6478.651 MG
     Route: 042
     Dates: start: 20170822, end: 20171003
  44. DOCETAXEL [Suspect]
     Active Substance: DOCETAXEL
     Dosage: 88 MILLIGRAM, EVERY 3 WEEKS, CUMULATIVE DOSE TO FIRST REACTION: 6478.651 MG
     Route: 042
     Dates: start: 20170822, end: 20171003
  45. DOCETAXEL [Suspect]
     Active Substance: DOCETAXEL
     Dosage: 108 MILLIGRAM EVERY 3 WEEKS(CUMULATIVE DOSE TO FIRST REACTION: 8275.071 MG)
     Route: 042
     Dates: start: 20170620, end: 20170801
  46. DOCETAXEL [Suspect]
     Active Substance: DOCETAXEL
     Dosage: 108 MILLIGRAM EVERY 3 WEEKS(CUMULATIVE DOSE TO FIRST REACTION: 8275.071 MG)
     Route: 042
     Dates: start: 20170620, end: 20170801
  47. DOCETAXEL [Suspect]
     Active Substance: DOCETAXEL
     Dosage: 88 MILLIGRAM, EVERY 3 WEEKS, CUMULATIVE DOSE TO FIRST REACTION:88.0 MG
     Route: 042
     Dates: start: 20170822, end: 20171003
  48. DOCETAXEL [Suspect]
     Active Substance: DOCETAXEL
     Dosage: 88 MILLIGRAM, EVERY 3 WEEKS, CUMULATIVE DOSE TO FIRST REACTION:88.0 MG
     Route: 042
     Dates: start: 20170822, end: 20171003
  49. DOCETAXEL [Suspect]
     Active Substance: DOCETAXEL
     Dosage: 108 MILLIGRAM EVERY 3 WEEKS(CUMULATIVE DOSE TO FIRST REACTION: 216.0 MG)
     Route: 042
     Dates: start: 20170620, end: 20170801
  50. DOCETAXEL [Suspect]
     Active Substance: DOCETAXEL
     Dosage: 108 MILLIGRAM EVERY 3 WEEKS(CUMULATIVE DOSE TO FIRST REACTION: 216.0 MG)
     Route: 042
     Dates: start: 20170620, end: 20170801
  51. PACLITAXEL [Suspect]
     Active Substance: PACLITAXEL
     Indication: Breast cancer
     Dosage: 450 MG, EVERY 3 WEEKS
     Route: 042
     Dates: start: 20170614, end: 20170614
  52. PACLITAXEL [Suspect]
     Active Substance: PACLITAXEL
     Indication: HER2 positive breast cancer
     Dosage: 450 MG, EVERY 3 WEEKS
     Route: 042
     Dates: start: 20170614, end: 20170614
  53. PACLITAXEL [Suspect]
     Active Substance: PACLITAXEL
     Dosage: 450 MG, EVERY 3 WEEKS (CUMULATIVE DOSE TO FIRST REACTION: 1125 MG)
     Route: 042
     Dates: start: 20170614, end: 20170614
  54. PACLITAXEL [Suspect]
     Active Substance: PACLITAXEL
     Dosage: 375 MG, EVERY 3 WEEKS
     Route: 042
     Dates: start: 20170705, end: 20170726
  55. PACLITAXEL [Suspect]
     Active Substance: PACLITAXEL
     Dosage: 375 MG, EVERY 3 WEEKS
     Route: 042
     Dates: start: 20170705, end: 20170726
  56. PACLITAXEL [Suspect]
     Active Substance: PACLITAXEL
     Dosage: 375 MG, EVERY 3 WEEKS (CUMULATIVE DOSE TO FIRST REACTION: 1125 MG)
     Route: 042
     Dates: start: 20170705, end: 20170726
  57. PACLITAXEL [Suspect]
     Active Substance: PACLITAXEL
     Dosage: 275 MG, EVERY 3 WEEKS
     Route: 042
     Dates: start: 20170715
  58. PACLITAXEL [Suspect]
     Active Substance: PACLITAXEL
     Dosage: 300 MG, EVERY 3 WEEKS
     Route: 042
     Dates: start: 20170816, end: 20170906
  59. PACLITAXEL [Suspect]
     Active Substance: PACLITAXEL
     Dosage: 300 MG, EVERY 3 WEEKS
     Route: 042
     Dates: start: 20170816, end: 20170906
  60. PACLITAXEL [Suspect]
     Active Substance: PACLITAXEL
     Dosage: 300 MG, EVERY 3 WEEKS (CUMULATIVE DOSE TO FIRST REACTION: 1125 MG)
     Route: 042
     Dates: start: 20170816, end: 20170906
  61. PERTUZUMAB [Suspect]
     Active Substance: PERTUZUMAB
     Indication: Breast cancer
     Dosage: 840 MILLIGRAM, Q3WK; DOSE FORM: 120
     Route: 042
     Dates: start: 20170524, end: 20170524
  62. PERTUZUMAB [Suspect]
     Active Substance: PERTUZUMAB
     Indication: HER2 positive breast cancer
     Dosage: 840 MILLIGRAM, Q3WK (CUMULATIVE DOSE TO FIRST REACTION: 13020 MG); DOSE FORM: 120
     Route: 042
     Dates: start: 20170524, end: 20170524
  63. PERTUZUMAB [Suspect]
     Active Substance: PERTUZUMAB
     Indication: Breast cancer metastatic
     Dosage: 420 MILLIGRAM, Q3WK; DOSE FORM: 120
     Route: 042
     Dates: start: 20170614, end: 20190327
  64. PERTUZUMAB [Suspect]
     Active Substance: PERTUZUMAB
     Dosage: 420 MILLIGRAM, Q3WK (CUMULATIVE DOSE TO FIRST REACTION: 13020 MG); DOSE FORM: 120
     Route: 042
     Dates: start: 20170614, end: 20190327
  65. PERTUZUMAB [Suspect]
     Active Substance: PERTUZUMAB
     Dosage: 420 MILLIGRAM, Q3WK; DOSE FORM: 230, CUMULATIVE DOSE TO FIRST REACTION: 32460.834 MG
     Route: 042
     Dates: start: 20170711, end: 20180502
  66. PERTUZUMAB [Suspect]
     Active Substance: PERTUZUMAB
     Dosage: 420 MILLIGRAM, Q3WK; DOSE FORM: 230, CUMULATIVE DOSE TO FIRST REACTION: 32460.834 MG
     Route: 042
     Dates: start: 20170711, end: 20180502
  67. PERTUZUMAB [Suspect]
     Active Substance: PERTUZUMAB
     Dosage: 420 MILLIGRAM, Q3WK (CUMULATIVE DOSE TO FIRST REACTION: 25620.834 MG); DOSE FORM: 230
     Route: 042
     Dates: start: 20180618, end: 20180618
  68. PERTUZUMAB [Suspect]
     Active Substance: PERTUZUMAB
     Dosage: 420 MILLIGRAM, Q3WK (CUMULATIVE DOSE TO FIRST REACTION: 25620.834 MG); DOSE FORM: 230
     Route: 042
     Dates: start: 20180618, end: 20180618
  69. PERTUZUMAB [Suspect]
     Active Substance: PERTUZUMAB
     Dosage: 420 MILLIGRAM, Q3WK (CUMULATIVE DOSE TO FIRST REACTION: 32900.832 MG); DOSE FORM: 230
     Route: 042
     Dates: start: 20170619, end: 20170619
  70. PERTUZUMAB [Suspect]
     Active Substance: PERTUZUMAB
     Dosage: 420 MILLIGRAM, Q3WK (CUMULATIVE DOSE TO FIRST REACTION: 32900.832 MG); DOSE FORM: 230
     Route: 042
     Dates: start: 20170619, end: 20170619
  71. PERTUZUMAB [Suspect]
     Active Substance: PERTUZUMAB
     Dosage: 420 MILLIGRAM, Q3WK (CUMULATIVE DOSE TO FIRST REACTION: 25200.834 MG); DOSE FORM: 230
     Route: 042
     Dates: start: 20180709, end: 20181024
  72. PERTUZUMAB [Suspect]
     Active Substance: PERTUZUMAB
     Dosage: 420 MILLIGRAM, Q3WK (CUMULATIVE DOSE TO FIRST REACTION: 25200.834 MG); DOSE FORM: 230
     Route: 042
     Dates: start: 20180709, end: 20181024
  73. PERTUZUMAB [Suspect]
     Active Substance: PERTUZUMAB
     Dosage: 420 MILLIGRAM, Q3WK (CUMULATIVE DOSE TO FIRST REACTION: 32200.834 MG)
     Route: 042
     Dates: start: 20170619, end: 20170619
  74. PERTUZUMAB [Suspect]
     Active Substance: PERTUZUMAB
     Dosage: 420 MILLIGRAM, Q3WK (CUMULATIVE DOSE TO FIRST REACTION: 32200.834 MG)
     Route: 042
     Dates: start: 20170619, end: 20170619
  75. PERTUZUMAB [Suspect]
     Active Substance: PERTUZUMAB
     Dosage: 420 MILLIGRAM, Q3WK (CUMULATIVE DOSE TO FIRST REACTION: 24920.834 MG)
     Route: 042
     Dates: start: 20180618, end: 20180618
  76. PERTUZUMAB [Suspect]
     Active Substance: PERTUZUMAB
     Dosage: 420 MILLIGRAM, Q3WK (CUMULATIVE DOSE TO FIRST REACTION: 24920.834 MG)
     Route: 042
     Dates: start: 20180618, end: 20180618
  77. PERTUZUMAB [Suspect]
     Active Substance: PERTUZUMAB
     Dosage: 420 MILLIGRAM, Q3WK; DOSE FORM: 230, CUMULATIVE DOSE TO FIRST REACTION: 31760.834 MG
     Route: 042
     Dates: start: 20170711, end: 20180502
  78. PERTUZUMAB [Suspect]
     Active Substance: PERTUZUMAB
     Dosage: 420 MILLIGRAM, Q3WK (CUMULATIVE DOSE TO FIRST REACTION: 24500.834 MG)
     Route: 042
     Dates: start: 20180709, end: 20181024
  79. PERTUZUMAB [Suspect]
     Active Substance: PERTUZUMAB
     Dosage: 420 MILLIGRAM, Q3WK (CUMULATIVE DOSE TO FIRST REACTION: 24500.834 MG)
     Route: 042
     Dates: start: 20180709, end: 20181024
  80. PERTUZUMAB [Suspect]
     Active Substance: PERTUZUMAB
     Dosage: 420 MILLIGRAM, Q3WK (CUMULATIVE DOSE TO FIRST REACTION: 859.999999 MG)
     Route: 042
     Dates: start: 20170619, end: 20170619
  81. PERTUZUMAB [Suspect]
     Active Substance: PERTUZUMAB
     Dosage: 420 MILLIGRAM, Q3WK (CUMULATIVE DOSE TO FIRST REACTION: 859.999999 MG)
     Route: 042
     Dates: start: 20170619, end: 20170619
  82. PERTUZUMAB [Suspect]
     Active Substance: PERTUZUMAB
     Dosage: 420 MILLIGRAM, Q3WK (CUMULATIVE DOSE TO FIRST REACTION:6420.0 MG)
     Route: 042
     Dates: start: 20180618, end: 20180618
  83. PERTUZUMAB [Suspect]
     Active Substance: PERTUZUMAB
     Dosage: 420 MILLIGRAM, Q3WK (CUMULATIVE DOSE TO FIRST REACTION:6420.0 MG)
     Route: 042
     Dates: start: 20180618, end: 20180618
  84. PERTUZUMAB [Suspect]
     Active Substance: PERTUZUMAB
     Dosage: 420 MILLIGRAM, Q3WK; DOSE FORM: 230, CUMULATIVE DOSE TO FIRST REACTION: 420.0 MG
     Route: 042
     Dates: start: 20170711, end: 20180502
  85. PERTUZUMAB [Suspect]
     Active Substance: PERTUZUMAB
     Dosage: 420 MILLIGRAM, Q3WK; DOSE FORM: 230, CUMULATIVE DOSE TO FIRST REACTION: 420.0 MG
     Route: 042
     Dates: start: 20170711, end: 20180502
  86. PERTUZUMAB [Suspect]
     Active Substance: PERTUZUMAB
     Dosage: 420 MILLIGRAM, Q3WK (CUMULATIVE DOSE TO FIRST REACTION: 6840.0 MG)
     Route: 042
     Dates: start: 20180709, end: 20181024
  87. PERTUZUMAB [Suspect]
     Active Substance: PERTUZUMAB
     Dosage: 420 MILLIGRAM, Q3WK (CUMULATIVE DOSE TO FIRST REACTION: 6840.0 MG)
     Route: 042
     Dates: start: 20180709, end: 20181024
  88. ADO-TRASTUZUMAB EMTANSINE [Suspect]
     Active Substance: ADO-TRASTUZUMAB EMTANSINE
     Indication: Breast cancer
     Dosage: 240 MILLIGRAM, Q3WK
     Route: 042
     Dates: start: 20190427, end: 20190606
  89. ADO-TRASTUZUMAB EMTANSINE [Suspect]
     Active Substance: ADO-TRASTUZUMAB EMTANSINE
     Indication: HER2 positive breast cancer
     Dosage: 240 MILLIGRAM, Q3WK
     Route: 042
     Dates: start: 20190427, end: 20190606
  90. ADO-TRASTUZUMAB EMTANSINE [Suspect]
     Active Substance: ADO-TRASTUZUMAB EMTANSINE
     Indication: Breast cancer metastatic
     Dosage: 240 MILLIGRAM, Q3WK (CUMULATIVE DOSE TO FIRST REACTION: 661.818 MG)
     Route: 042
     Dates: start: 20190427, end: 20190606
  91. ADO-TRASTUZUMAB EMTANSINE [Suspect]
     Active Substance: ADO-TRASTUZUMAB EMTANSINE
     Dosage: 200 MILLIGRAM, Q3WK; DOSE FORM: 120
     Route: 042
     Dates: start: 20190627, end: 20190718
  92. ADO-TRASTUZUMAB EMTANSINE [Suspect]
     Active Substance: ADO-TRASTUZUMAB EMTANSINE
     Dosage: 200 MILLIGRAM, Q3WK (CUMULATIVE DOSE TO FIRST REACTION: 661.818 MG); DOSE FORM: 120
     Route: 042
     Dates: start: 20190627, end: 20190718
  93. ADO-TRASTUZUMAB EMTANSINE [Suspect]
     Active Substance: ADO-TRASTUZUMAB EMTANSINE
     Dosage: 200 MILLIGRAM, Q3WK; DOSE FORM: 120
     Route: 042
     Dates: start: 20190627, end: 20190718
  94. ADO-TRASTUZUMAB EMTANSINE [Suspect]
     Active Substance: ADO-TRASTUZUMAB EMTANSINE
     Dosage: 160 MILLIGRAM, Q3WK
     Route: 042
     Dates: start: 20190829, end: 20200326
  95. ADO-TRASTUZUMAB EMTANSINE [Suspect]
     Active Substance: ADO-TRASTUZUMAB EMTANSINE
     Dosage: 160 MILLIGRAM, Q3WK
     Route: 042
     Dates: start: 20190829, end: 20200326
  96. ADO-TRASTUZUMAB EMTANSINE [Suspect]
     Active Substance: ADO-TRASTUZUMAB EMTANSINE
     Dosage: 160 MILLIGRAM, Q3WK (CUMULATIVE DOSE TO FIRST REACTION: 661.818 MG)
     Route: 042
     Dates: start: 20190829, end: 20200326
  97. ADO-TRASTUZUMAB EMTANSINE [Suspect]
     Active Substance: ADO-TRASTUZUMAB EMTANSINE
     Dosage: 200 MILLIGRAM, Q3WK (CUMULATIVE DOSE TO FIRST REACTION: 10704.762 MG); DOSE FORM: 230
     Route: 042
     Dates: start: 20181122, end: 20201217
  98. ADO-TRASTUZUMAB EMTANSINE [Suspect]
     Active Substance: ADO-TRASTUZUMAB EMTANSINE
     Dosage: 200 MILLIGRAM, Q3WK (CUMULATIVE DOSE TO FIRST REACTION: 10704.762 MG); DOSE FORM: 230
     Route: 042
     Dates: start: 20181122, end: 20201217
  99. ADO-TRASTUZUMAB EMTANSINE [Suspect]
     Active Substance: ADO-TRASTUZUMAB EMTANSINE
     Dosage: 180 MILLIGRAM, Q3WK (CUMULATIVE DOSE TO FIRST REACTION: 3154.2856 MG); DOSE FORM: 230
     Route: 042
     Dates: start: 20201217, end: 20210827
  100. ADO-TRASTUZUMAB EMTANSINE [Suspect]
     Active Substance: ADO-TRASTUZUMAB EMTANSINE
     Dosage: 180 MILLIGRAM, Q3WK (CUMULATIVE DOSE TO FIRST REACTION: 3154.2856 MG); DOSE FORM: 230
     Route: 042
     Dates: start: 20201217, end: 20210827
  101. ADO-TRASTUZUMAB EMTANSINE [Suspect]
     Active Substance: ADO-TRASTUZUMAB EMTANSINE
     Dosage: 200 MILLIGRAM, Q3WK (CUMULATIVE DOSE TO FIRST REACTION: 5571.825 MG); DOSE FORM: 230
     Route: 042
     Dates: start: 20200514, end: 20201126
  102. ADO-TRASTUZUMAB EMTANSINE [Suspect]
     Active Substance: ADO-TRASTUZUMAB EMTANSINE
     Dosage: 200 MILLIGRAM, Q3WK (CUMULATIVE DOSE TO FIRST REACTION: 5571.825 MG); DOSE FORM: 230
     Route: 042
     Dates: start: 20200514, end: 20201126
  103. ADO-TRASTUZUMAB EMTANSINE [Suspect]
     Active Substance: ADO-TRASTUZUMAB EMTANSINE
     Dosage: 180 MILLIGRAM, Q3WK (CUMULATIVE DOSE TO FIRST REACTION: 5691.4287 MG); DOSE FORM: 230
     Route: 042
     Dates: start: 20200225, end: 20200225
  104. ADO-TRASTUZUMAB EMTANSINE [Suspect]
     Active Substance: ADO-TRASTUZUMAB EMTANSINE
     Dosage: 180 MILLIGRAM, Q3WK (CUMULATIVE DOSE TO FIRST REACTION: 5691.4287 MG); DOSE FORM: 230
     Route: 042
     Dates: start: 20200225, end: 20200225
  105. ADO-TRASTUZUMAB EMTANSINE [Suspect]
     Active Substance: ADO-TRASTUZUMAB EMTANSINE
     Dosage: 200 MILLIGRAM, Q3WK (CUMULATIVE DOSE TO FIRST REACTION: 5238.492 MG)
     Route: 042
     Dates: start: 20200514, end: 20201126
  106. ADO-TRASTUZUMAB EMTANSINE [Suspect]
     Active Substance: ADO-TRASTUZUMAB EMTANSINE
     Dosage: 200 MILLIGRAM, Q3WK (CUMULATIVE DOSE TO FIRST REACTION: 5238.492 MG)
     Route: 042
     Dates: start: 20200514, end: 20201126
  107. ADO-TRASTUZUMAB EMTANSINE [Suspect]
     Active Substance: ADO-TRASTUZUMAB EMTANSINE
     Dosage: 180 MILLIGRAM, Q3WK (CUMULATIVE DOSE TO FIRST REACTION: 2854.2856 MG)
     Route: 042
     Dates: start: 20201217, end: 20210827
  108. ADO-TRASTUZUMAB EMTANSINE [Suspect]
     Active Substance: ADO-TRASTUZUMAB EMTANSINE
     Dosage: 180 MILLIGRAM, Q3WK (CUMULATIVE DOSE TO FIRST REACTION: 2854.2856 MG)
     Route: 042
     Dates: start: 20201217, end: 20210827
  109. ADO-TRASTUZUMAB EMTANSINE [Suspect]
     Active Substance: ADO-TRASTUZUMAB EMTANSINE
     Dosage: 180 MILLIGRAM, Q3WK (CUMULATIVE DOSE TO FIRST REACTION: 5391.4287 MG)
     Route: 042
     Dates: start: 20200225, end: 20200225
  110. ADO-TRASTUZUMAB EMTANSINE [Suspect]
     Active Substance: ADO-TRASTUZUMAB EMTANSINE
     Dosage: 180 MILLIGRAM, Q3WK (CUMULATIVE DOSE TO FIRST REACTION: 5391.4287 MG)
     Route: 042
     Dates: start: 20200225, end: 20200225
  111. ADO-TRASTUZUMAB EMTANSINE [Suspect]
     Active Substance: ADO-TRASTUZUMAB EMTANSINE
     Dosage: 200 MILLIGRAM, Q3WK (CUMULATIVE DOSE TO FIRST REACTION: 10371.429 MG)
     Route: 042
     Dates: start: 20181122, end: 20201217
  112. ADO-TRASTUZUMAB EMTANSINE [Suspect]
     Active Substance: ADO-TRASTUZUMAB EMTANSINE
     Dosage: 200 MILLIGRAM, Q3WK (CUMULATIVE DOSE TO FIRST REACTION: 10371.429 MG)
     Route: 042
     Dates: start: 20181122, end: 20201217
  113. ADO-TRASTUZUMAB EMTANSINE [Suspect]
     Active Substance: ADO-TRASTUZUMAB EMTANSINE
     Dosage: 200 MILLIGRAM, Q3WK (CUMULATIVE DOSE TO FIRST REACTION: 4552.778 MG
     Route: 042
     Dates: start: 20181122, end: 20201217
  114. ADO-TRASTUZUMAB EMTANSINE [Suspect]
     Active Substance: ADO-TRASTUZUMAB EMTANSINE
     Dosage: 200 MILLIGRAM, Q3WK (CUMULATIVE DOSE TO FIRST REACTION: 4552.778 MG
     Route: 042
     Dates: start: 20181122, end: 20201217
  115. ADO-TRASTUZUMAB EMTANSINE [Suspect]
     Active Substance: ADO-TRASTUZUMAB EMTANSINE
     Dosage: 180 MILLIGRAM, Q3WK (CUMULATIVE DOSE TO FIRST REACTION: 8040.357 MG)
     Route: 042
     Dates: start: 20200225, end: 20200225
  116. ADO-TRASTUZUMAB EMTANSINE [Suspect]
     Active Substance: ADO-TRASTUZUMAB EMTANSINE
     Dosage: 180 MILLIGRAM, Q3WK (CUMULATIVE DOSE TO FIRST REACTION: 8040.357 MG)
     Route: 042
     Dates: start: 20200225, end: 20200225
  117. ADO-TRASTUZUMAB EMTANSINE [Suspect]
     Active Substance: ADO-TRASTUZUMAB EMTANSINE
     Dosage: 180 MILLIGRAM, Q3WK (CUMULATIVE DOSE TO FIRST REACTION: 10577.5 MG)
     Route: 042
     Dates: start: 20200225, end: 20200225
  118. ADO-TRASTUZUMAB EMTANSINE [Suspect]
     Active Substance: ADO-TRASTUZUMAB EMTANSINE
     Dosage: 180 MILLIGRAM, Q3WK (CUMULATIVE DOSE TO FIRST REACTION: 10577.5 MG)
     Route: 042
     Dates: start: 20200225, end: 20200225
  119. ADO-TRASTUZUMAB EMTANSINE [Suspect]
     Active Substance: ADO-TRASTUZUMAB EMTANSINE
     Dosage: 200 MILLIGRAM, Q3WK (CUMULATIVE DOSE TO FIRST REACTION: 9685.714 MG)
     Route: 042
     Dates: start: 20200514, end: 20201126
  120. ADO-TRASTUZUMAB EMTANSINE [Suspect]
     Active Substance: ADO-TRASTUZUMAB EMTANSINE
     Dosage: 200 MILLIGRAM, Q3WK (CUMULATIVE DOSE TO FIRST REACTION: 9685.714 MG)
     Route: 042
     Dates: start: 20200514, end: 20201126
  121. PACLITAXEL [Suspect]
     Active Substance: PACLITAXEL
     Indication: Breast cancer
     Dosage: 450 MILLIGRAM, Q3WK
     Route: 042
     Dates: start: 20170614, end: 20170614
  122. PACLITAXEL [Suspect]
     Active Substance: PACLITAXEL
     Indication: HER2 positive breast cancer
     Dosage: 375 MILLIGRAM, Q3WK (CUMULATIVE DOSE TO FIRST REACTION: 300 MG)
     Route: 042
     Dates: start: 20170705, end: 20170726
  123. PACLITAXEL [Suspect]
     Active Substance: PACLITAXEL
     Dosage: 300 MILLIGRAM, Q3WK (CUMULATIVE DOSE TO FIRST REACTION: 300 MG)
     Route: 042
     Dates: start: 20170816, end: 20170906
  124. PACLITAXEL [Suspect]
     Active Substance: PACLITAXEL
     Dosage: 450 MILLIGRAM, Q3WK (CUMULATIVE DOSE TO FIRST REACTION: 300 MG)
     Route: 042
     Dates: start: 20170614, end: 20170614
  125. PACLITAXEL [Suspect]
     Active Substance: PACLITAXEL
     Dosage: 275 MILLIGRAM, Q3WK (CUMULATIVE DOSE TO FIRST REACTION: 300 MG)
     Route: 042
     Dates: start: 20170715
  126. ABRAXANE [Suspect]
     Active Substance: PACLITAXEL
     Indication: HER2 positive breast cancer
     Dosage: 300 MG EVERY 3 WEEKS; DOSE FORM: 124
     Route: 042
     Dates: start: 20170816, end: 20170906
  127. ABRAXANE [Suspect]
     Active Substance: PACLITAXEL
     Indication: Off label use
     Dosage: 300 MG EVERY 3 WEEKS; DOSE FORM: 124
     Route: 042
     Dates: start: 20170816, end: 20170906
  128. ABRAXANE [Suspect]
     Active Substance: PACLITAXEL
     Dosage: 300 MG EVERY 3 WEEKS; DOSE FORM: 124
     Route: 042
     Dates: start: 20170816, end: 20170906
  129. ABRAXANE [Suspect]
     Active Substance: PACLITAXEL
     Dosage: 450 MG EVERY 3 WEEK; DOSE FORM: 124)
     Route: 042
     Dates: start: 20170614, end: 20170614
  130. ABRAXANE [Suspect]
     Active Substance: PACLITAXEL
     Dosage: 450 MG EVERY 3 WEEK; DOSE FORM: 124)
     Route: 042
     Dates: start: 20170614, end: 20170614
  131. ABRAXANE [Suspect]
     Active Substance: PACLITAXEL
     Dosage: 450 MG EVERY 3 WEEK; DOSE FORM: 124)
     Route: 042
     Dates: start: 20170614, end: 20170614
  132. ABRAXANE [Suspect]
     Active Substance: PACLITAXEL
     Dosage: 275 MILLIGRAM, EVERY 3 WEEK; DOSE FORM: 120)
     Route: 042
     Dates: start: 20170705, end: 20170726
  133. ABRAXANE [Suspect]
     Active Substance: PACLITAXEL
     Dosage: 275 MILLIGRAM, EVERY 3 WEEK; DOSE FORM: 120)
     Route: 042
     Dates: start: 20170705, end: 20170726
  134. ABRAXANE [Suspect]
     Active Substance: PACLITAXEL
     Dosage: 275 MILLIGRAM, EVERY 3 WEEK; DOSE FORM: 120)
     Route: 042
     Dates: start: 20170705, end: 20170726
  135. ABRAXANE [Suspect]
     Active Substance: PACLITAXEL
     Dosage: 275 MILLIGRAM, EVERY 3 WEEK; DOSE FORM: 120)
     Route: 042
     Dates: start: 20170715
  136. ABRAXANE [Suspect]
     Active Substance: PACLITAXEL
     Dosage: 275 MILLIGRAM, EVERY 3 WEEK; DOSE FORM: 120)
     Route: 042
     Dates: start: 20170715
  137. ABRAXANE [Suspect]
     Active Substance: PACLITAXEL
     Dosage: 275 MILLIGRAM, EVERY 3 WEEK; DOSE FORM: 120)
     Route: 042
     Dates: start: 20170715
  138. ABRAXANE [Suspect]
     Active Substance: PACLITAXEL
     Dosage: 275 MILLIGRAM, EVERY 3 WEEK; DOSE FORM: 120)
     Route: 042
     Dates: start: 20170715
  139. ABRAXANE [Suspect]
     Active Substance: PACLITAXEL
     Dosage: 275 MILLIGRAM, EVERY 3 WEEK; DOSE FORM: 120)
     Route: 042
     Dates: start: 20170715
  140. ABRAXANE [Suspect]
     Active Substance: PACLITAXEL
     Dosage: 275 MILLIGRAM, EVERY 3 WEEK; DOSE FORM: 120)
     Route: 042
     Dates: start: 20170715
  141. CAPECITABINE [Suspect]
     Active Substance: CAPECITABINE
     Indication: Breast cancer metastatic
     Dosage: 1150 MILLIGRAM
     Route: 048
     Dates: start: 20211013
  142. NERATINIB [Suspect]
     Active Substance: NERATINIB
     Indication: Breast cancer metastatic
     Dosage: 240 MG, QD
     Route: 048
     Dates: start: 20211013
  143. NERATINIB [Suspect]
     Active Substance: NERATINIB
     Dosage: 240 MG, QD; CUMULATIVE DOSE TO FIRST REACTION: 7929.99999 MG
     Route: 048
     Dates: start: 20211013
  144. NERATINIB [Suspect]
     Active Substance: NERATINIB
     Dosage: 240 MG, QD; CUMULATIVE DOSE TO FIRST REACTION: 368160.0 MG)
     Route: 048
     Dates: start: 20211013
  145. AMIKACIN [Concomitant]
     Active Substance: AMIKACIN
     Indication: Biliary sepsis
     Dosage: DOSE FORM: 120
     Route: 042
     Dates: start: 20200504, end: 20200504
  146. AMITRIPTYLINE HYDROCHLORIDE [Concomitant]
     Active Substance: AMITRIPTYLINE HYDROCHLORIDE
     Indication: Depressed mood
     Dosage: 5 MG, EVERY 1 DAY (CUMULATIVE DOSE TO FIRST REACTION: 210.0 MG)
     Route: 048
     Dates: start: 20190827
  147. AMITRIPTYLINE HYDROCHLORIDE [Concomitant]
     Active Substance: AMITRIPTYLINE HYDROCHLORIDE
     Dosage: UNK
  148. APIXABAN [Concomitant]
     Active Substance: APIXABAN
  149. AZTREONAM [Concomitant]
     Active Substance: AZTREONAM
     Indication: Biliary sepsis
     Dosage: DOSE FORM: 120
     Route: 042
     Dates: start: 20200925, end: 20200925
  150. AZTREONAM [Concomitant]
     Active Substance: AZTREONAM
     Dosage: DOSE FORM: 120
     Route: 042
     Dates: start: 20201028
  151. WHOLE BLOOD [Concomitant]
     Active Substance: WHOLE BLOOD
     Indication: Duodenal ulcer
     Dosage: 2 UNITS; DOSE FORM: 120
     Route: 042
     Dates: start: 20201112, end: 20201112
  152. CALCIUM\CHOLECALCIFEROL [Concomitant]
     Active Substance: CALCIUM\CHOLECALCIFEROL
     Indication: Product used for unknown indication
     Dosage: UNK, TID
     Route: 048
     Dates: start: 20170525
  153. CALCIUM\CHOLECALCIFEROL [Concomitant]
     Active Substance: CALCIUM\CHOLECALCIFEROL
     Dosage: UNK
  154. CEFTRIAXONE [Concomitant]
     Active Substance: CEFTRIAXONE
     Indication: Biliary sepsis
     Dosage: 2 GRAM, QD (CUMULATIVE DOSE TO FIRST REACTION: 874 G); DOSE FORM: 120
     Route: 042
     Dates: start: 20200925, end: 20200927
  155. CEFTRIAXONE [Concomitant]
     Active Substance: CEFTRIAXONE
     Dosage: 250 MILLIGRAM, BID (CUMULATIVE DOSE TO FIRST REACTION: 220000 MG)
     Route: 048
     Dates: start: 20200928, end: 20201012
  156. CEFUROXIME [Concomitant]
     Active Substance: CEFUROXIME
     Indication: Biliary sepsis
     Dosage: 250 MILLIGRAM, 0.5 DAY
     Route: 048
     Dates: start: 20200925, end: 20201009
  157. CEFUROXIME [Concomitant]
     Active Substance: CEFUROXIME
     Dosage: 250 MILLIGRAM, BID, 0.5 DAY (CUMULATIVE DOSE TO FIRST REACTION: 218500.0 MG)
     Route: 048
     Dates: start: 20200925, end: 20201009
  158. CEFUROXIME [Concomitant]
     Active Substance: CEFUROXIME
     Dosage: 250 MILLIGRAM, 0.5 DAY
     Route: 048
     Dates: start: 20201028
  159. CEFUROXIME [Concomitant]
     Active Substance: CEFUROXIME
     Dosage: 250 MG, BID, 0.5 DAY (CUMULATIVE DOSE TO FIRST REACTION: 235020.83 MG)
     Route: 048
     Dates: start: 20201028
  160. CETIRIZINE [Concomitant]
     Active Substance: CETIRIZINE HYDROCHLORIDE
     Indication: Pustule
     Dosage: UNK UNK, QD
     Route: 048
     Dates: start: 20190313
  161. CETIRIZINE [Concomitant]
     Active Substance: CETIRIZINE HYDROCHLORIDE
     Dosage: UNK
  162. CHLORHEXIDINE GLUCONATE [Concomitant]
     Active Substance: CHLORHEXIDINE GLUCONATE
     Indication: Product used for unknown indication
     Dosage: UNK, QID
     Route: 061
     Dates: start: 20170525
  163. CHLORHEXIDINE GLUCONATE [Concomitant]
     Active Substance: CHLORHEXIDINE GLUCONATE
     Dosage: UNK
  164. CHLORPHENIRAMINE MALEATE [Concomitant]
     Active Substance: CHLORPHENIRAMINE MALEATE
     Indication: Product used for unknown indication
     Dosage: UNK, QID
     Route: 048
     Dates: start: 20170526
  165. CHLORPHENIRAMINE MALEATE [Concomitant]
     Active Substance: CHLORPHENIRAMINE MALEATE
     Dosage: UNK
  166. CIPROFLOXACIN [Concomitant]
     Active Substance: CIPROFLOXACIN
     Indication: Pyrexia
     Dosage: UNK, BID
     Route: 048
     Dates: start: 20200707, end: 202007
  167. CIPROFLOXACIN [Concomitant]
     Active Substance: CIPROFLOXACIN
     Indication: Cholecystitis acute
     Dosage: 2, EVERY 1 DAY
     Route: 048
     Dates: start: 20200707, end: 202007
  168. CIPROFLOXACIN [Concomitant]
     Active Substance: CIPROFLOXACIN
     Dosage: 250 MILLIGRAM, BID (CUMULATIVE DOSE TO FIRST REACTION: 188000.0 MG)
     Route: 048
     Dates: start: 20200726, end: 20200801
  169. CIPROFLOXACIN [Concomitant]
     Active Substance: CIPROFLOXACIN
     Dosage: 500 MILLIGRAM, BID (CUMULATIVE DOSE TO FIRST REACTION: 396000.0 MG)
     Route: 048
     Dates: start: 20200815, end: 20200819
  170. CIPROFLOXACIN [Concomitant]
     Active Substance: CIPROFLOXACIN
     Dosage: 500 MILLIGRAM,BID, 0.5 DAY (CUMULATIVE DOSE TO FIRST REACTION: 404000.0 MG)
     Route: 048
     Dates: start: 20200823, end: 20200828
  171. CIPROFLOXACIN [Concomitant]
     Active Substance: CIPROFLOXACIN
     Dosage: 500 MILLIGRAM, BID(CUMULATIVE DOSE TO FIRST REACTION: 421000.0 MG)
     Route: 048
     Dates: start: 20200909, end: 20200916
  172. CLOBETASOL PROPIONATE [Concomitant]
     Active Substance: CLOBETASOL PROPIONATE
     Indication: Product used for unknown indication
     Dosage: UNK, BID, 0.5 DAY
     Route: 061
     Dates: start: 20170210
  173. CLOBETASOL PROPIONATE [Concomitant]
     Active Substance: CLOBETASOL PROPIONATE
     Dosage: UNK
  174. DOMPERIDONE [Concomitant]
     Active Substance: DOMPERIDONE
     Indication: Product used for unknown indication
     Dosage: 10 MILLIGRAM, 0.33 DAY
     Route: 048
     Dates: start: 20170523
  175. DOMPERIDONE [Concomitant]
     Active Substance: DOMPERIDONE
     Dosage: 30 MG, EVERY DAY
     Route: 048
     Dates: start: 20170523
  176. DOMPERIDONE [Concomitant]
     Active Substance: DOMPERIDONE
     Dosage: UNK
  177. ERTAPENEM [Concomitant]
     Active Substance: ERTAPENEM
     Indication: Biliary sepsis
     Dosage: 1 GRAM; DOSE FORM: 120
     Route: 042
     Dates: start: 20200501, end: 20200502
  178. ERTAPENEM [Concomitant]
     Active Substance: ERTAPENEM
     Indication: Clostridium difficile infection
     Dosage: 1 GRAM; DOSE FORM: 120
     Route: 042
     Dates: start: 20201104, end: 20201111
  179. ERYTHROMYCIN [Concomitant]
     Active Substance: ERYTHROMYCIN
     Dosage: UNK
     Route: 048
     Dates: start: 20190123, end: 20190202
  180. FLUCLOXACILLIN [Concomitant]
     Active Substance: FLUCLOXACILLIN
     Indication: Folliculitis
     Dosage: UNK
     Route: 048
     Dates: start: 20190122
  181. FLUCLOXACILLIN [Concomitant]
     Active Substance: FLUCLOXACILLIN
     Dosage: UNK
  182. FUSIDIC ACID [Concomitant]
     Active Substance: FUSIDIC ACID
     Indication: Product used for unknown indication
     Dosage: UNK
     Route: 065
     Dates: start: 201905
  183. FUSIDIC ACID [Concomitant]
     Active Substance: FUSIDIC ACID
     Dosage: UNK
  184. HALAVEN [Concomitant]
     Active Substance: ERIBULIN MESYLATE
     Indication: Breast cancer
     Dosage: 1.85 MILLIGRAM; DOSAGE FORM: 120
     Route: 042
     Dates: start: 20200611, end: 20200820
  185. CYCLOSPORINE [Concomitant]
     Active Substance: CYCLOSPORINE
     Indication: Blepharitis
     Dosage: UNK
     Route: 047
     Dates: start: 201708
  186. CYCLOSPORINE [Concomitant]
     Active Substance: CYCLOSPORINE
     Dosage: UNK
  187. LANSOPRAZOLE [Concomitant]
     Active Substance: LANSOPRAZOLE
     Indication: Gastritis
     Dosage: UNK, QD
     Route: 048
     Dates: start: 20190730, end: 20190730
  188. LANSOPRAZOLE [Concomitant]
     Active Substance: LANSOPRAZOLE
     Dosage: UNK
  189. LANSOPRAZOLE [Concomitant]
     Active Substance: LANSOPRAZOLE
     Dosage: UNK
  190. LOPERAMIDE [Concomitant]
     Active Substance: LOPERAMIDE
     Indication: Product used for unknown indication
     Dosage: 1 DOSAGE FORM, PRN; 1 AS PER REQUIRED.
     Route: 048
     Dates: start: 20170613
  191. LOPERAMIDE [Concomitant]
     Active Substance: LOPERAMIDE
     Dosage: UNK
  192. LOPERAMIDE [Concomitant]
     Active Substance: LOPERAMIDE
     Dosage: 16 MILLIGRAM, DOSE FORM: 245
     Route: 048
     Dates: start: 20170705, end: 20171003
  193. LOPERAMIDE [Concomitant]
     Active Substance: LOPERAMIDE
     Dosage: UNK
     Route: 048
     Dates: start: 20170705, end: 20171003
  194. MEROPENEM [Concomitant]
     Active Substance: MEROPENEM
     Indication: Abdominal pain
     Dosage: 2 GRAM, TID, 0.33 DAY (CUMULATIVE DOSE TO FIRST REACTION: 1746.0 G)
     Route: 042
     Dates: start: 20200502, end: 20200515
  195. MEROPENEM [Concomitant]
     Active Substance: MEROPENEM
     Indication: Biliary sepsis
     Dosage: UNK
     Route: 042
     Dates: start: 20201130
  196. MEROPENEM [Concomitant]
     Active Substance: MEROPENEM
     Indication: Pyrexia
     Dosage: DOSE FORM: 120
     Route: 042
     Dates: start: 20201130, end: 20201209
  197. MEROPENEM [Concomitant]
     Active Substance: MEROPENEM
     Dosage: UNK
  198. METRONIDAZOLE [Concomitant]
     Active Substance: METRONIDAZOLE
     Indication: Cholecystitis acute
     Dosage: UNK
     Route: 042
     Dates: start: 20200630, end: 20200709
  199. METRONIDAZOLE [Concomitant]
     Active Substance: METRONIDAZOLE
     Indication: Abdominal pain upper
     Dosage: UNK
     Route: 065
     Dates: start: 20200909, end: 20200914
  200. METRONIDAZOLE [Concomitant]
     Active Substance: METRONIDAZOLE
     Indication: Duodenal ulcer
     Dosage: 400 MG, MONTHLY (CUMULATIVE DOSE TO FIRST REACTION: 6520.5557 MG)
     Route: 048
     Dates: start: 20201116, end: 202011
  201. NERATINIB [Concomitant]
     Active Substance: NERATINIB
     Indication: Product used for unknown indication
     Dosage: 240 MILLIGRAM, QD (CUMULATIVE DOSE TO FIRST REACTION: 103440.0 MG)
     Route: 048
     Dates: start: 20200919, end: 20201104
  202. NERATINIB [Concomitant]
     Active Substance: NERATINIB
     Dosage: 240 MILLIGRAM, QD (CUMULATIVE DOSE TO FIRST REACTION: 368160.0 MG)
     Route: 048
     Dates: start: 20211013
  203. OMEPRAZOLE [Concomitant]
     Active Substance: OMEPRAZOLE
     Indication: Duodenal ulcer
     Dosage: 40 MILLIGRAM, BID, 0.5 DAY (38883.332 MG)
     Route: 048
     Dates: start: 20201113, end: 20210205
  204. ACETAMINOPHEN [Concomitant]
     Active Substance: ACETAMINOPHEN
     Indication: Product used for unknown indication
     Dosage: UNK UNK, PRN; AS PER REQUIRED.
     Route: 048
     Dates: start: 20170525
  205. ACETAMINOPHEN [Concomitant]
     Active Substance: ACETAMINOPHEN
     Dosage: UNK
  206. ACETAMINOPHEN [Concomitant]
     Active Substance: ACETAMINOPHEN
     Dosage: UNK, DOSE FORM: 245
     Route: 048
  207. RANITIDINE [Concomitant]
     Active Substance: RANITIDINE
  208. POTASSIUM BICARBONATE\POTASSIUM CHLORIDE [Concomitant]
     Active Substance: POTASSIUM BICARBONATE\POTASSIUM CHLORIDE
     Indication: Product used for unknown indication
     Dosage: UNK, BID
     Route: 048
     Dates: start: 20170525
  209. TEICOPLANIN [Concomitant]
     Active Substance: TEICOPLANIN
     Indication: Biliary sepsis
     Dosage: UNK; DOSAGE FORM: 120
     Route: 042
     Dates: start: 20200502, end: 20200515
  210. TEICOPLANIN [Concomitant]
     Active Substance: TEICOPLANIN
     Indication: Pyrexia
     Dosage: UNK; DOSE FORM: 120
     Route: 042
     Dates: start: 20200724, end: 20200728
  211. TEICOPLANIN [Concomitant]
     Active Substance: TEICOPLANIN
     Dosage: UNK; DOSE FORM: 120
     Route: 042
     Dates: start: 20200925, end: 20200925
  212. TEICOPLANIN [Concomitant]
     Active Substance: TEICOPLANIN
     Dosage: UNK; DOSE FORM: 120
     Route: 042
     Dates: start: 20201028
  213. TINZAPARIN [Concomitant]
     Active Substance: TINZAPARIN
     Indication: Thrombosis
     Dosage: UNK, QD
     Route: 058
     Dates: start: 20170713, end: 20170723
  214. TINZAPARIN [Concomitant]
     Active Substance: TINZAPARIN
     Dosage: UNK UNK, QD
     Route: 058
     Dates: start: 20190916
  215. TINZAPARIN [Concomitant]
     Active Substance: TINZAPARIN
     Dosage: UNK
  216. TINZAPARIN [Concomitant]
     Active Substance: TINZAPARIN
     Dosage: UNK
  217. TRANEXAMIC ACID [Concomitant]
     Active Substance: TRANEXAMIC ACID
     Indication: Duodenal ulcer
     Dosage: 1 GRAM
     Route: 048
     Dates: start: 20201112
  218. TRANEXAMIC ACID [Concomitant]
     Active Substance: TRANEXAMIC ACID
     Dosage: UNK
     Route: 065
  219. VANCOMYCIN [Concomitant]
     Active Substance: VANCOMYCIN
     Indication: Clostridium difficile infection
     Dosage: 125 MILLIGRAM, 0.25 DAY (CUMULATIVE DOSE TO FIRST REACTION: 236020.83 MG)
     Route: 048
     Dates: start: 20201030, end: 20201104
  220. VANCOMYCIN [Concomitant]
     Active Substance: VANCOMYCIN
     Dosage: 500 MG, QID, 0.25 DAY (CUMULATIVE DOSE TO FIRST REACTION: 954083.3 MG)
     Route: 048
     Dates: start: 20201104, end: 20201113
  221. VANCOMYCIN [Concomitant]
     Active Substance: VANCOMYCIN
     Dosage: 125 MILLIGRAM, 0.25 DAY
     Route: 048
     Dates: start: 20201030, end: 20201104
  222. XELODA [Concomitant]
     Active Substance: CAPECITABINE
     Indication: Product used for unknown indication
     Dosage: 1300 MILLIGRAM
     Route: 048
     Dates: start: 20201020
  223. ZOLEDRONIC ACID [Concomitant]
     Active Substance: ZOLEDRONIC ACID
     Indication: Product used for unknown indication
     Dosage: 4 MILLIGRAM, Q4WK, ONCE IN EVERY 3 TO4 WEEKS. (CUMULATIVE DOSE TO FIRST REACTION: 111.71429 MG); DOS
     Route: 042
     Dates: start: 20170525
  224. ZOLEDRONIC ACID [Concomitant]
     Active Substance: ZOLEDRONIC ACID
     Dosage: UNK
  225. AMOXICILLIN [Concomitant]
     Active Substance: AMOXICILLIN
     Indication: Abdominal pain
     Dosage: UNK
  226. AMOXICILLIN [Concomitant]
     Active Substance: AMOXICILLIN
     Indication: Pyrexia
     Dosage: 625 MILLIGRAM, TID (CUMULATIVE DOSE TO FIRST REACTION: 963828.1 MG)
     Route: 048
     Dates: start: 20201211, end: 20201216
  227. VITAMIN K [Concomitant]
     Active Substance: PHYTONADIONE
     Indication: Duodenal ulcer
     Dosage: 10 MG; DOSE FORM: 120
     Route: 042
     Dates: start: 20201112, end: 20201113
  228. CARBOXYMETHYLCELLULOSE SODIUM\DEVICE\SORBINICATE [Concomitant]
     Active Substance: CARBOXYMETHYLCELLULOSE SODIUM\DEVICE\SORBINICATE
     Dosage: 4 DF, EVERY 1 DAY
     Route: 060
     Dates: start: 20170326
  229. COTRIMOXAZOLE [Concomitant]
     Active Substance: SULFAMETHOXAZOLE\TRIMETHOPRIM
     Dosage: 480 MG, DAILY, DOSE FORM: 245, CUMULATIVE DOSE TO FIRST REACTION: 789140.0 MG
     Route: 048
     Dates: start: 20170620
  230. COTRIMOXAZOLE [Concomitant]
     Active Substance: SULFAMETHOXAZOLE\TRIMETHOPRIM
     Dosage: 480 MG, DAILY, CUMULATIVE DOSE TO FIRST REACTION: 772340.0 MG
     Route: 048
     Dates: start: 20170620
  231. COTRIMOXAZOLE [Concomitant]
     Active Substance: SULFAMETHOXAZOLE\TRIMETHOPRIM
     Dosage: 480 MG, DAILY, CUMULATIVE DOSE TO FIRST REACTION: 20160.0 MG
     Route: 048
     Dates: start: 20170620
  232. DENOSUMAB [Concomitant]
     Active Substance: DENOSUMAB
     Dosage: 1 DF, MONTHLY
     Route: 058
  233. DEXAMETHASONE [Concomitant]
     Active Substance: DEXAMETHASONE
     Dosage: 8 MG, DOSE FORM: 245
     Route: 048
     Dates: start: 20170620, end: 20171003
  234. DEXAMETHASONE [Concomitant]
     Active Substance: DEXAMETHASONE
     Dosage: 8 MG, DOSE FORM: 245, CUMULATIVE DOSE TO FIRST REACTION: 2896.0 MG
     Route: 048
     Dates: start: 20201223, end: 20210102
  235. DEXAMETHASONE [Concomitant]
     Active Substance: DEXAMETHASONE
     Dosage: 4 MG, DOSE FORM: 245, CUMULATIVE DOSE TO FIRST REACTION: 1404.0 MG
     Route: 048
     Dates: start: 20210103, end: 20210103
  236. DEXAMETHASONE [Concomitant]
     Active Substance: DEXAMETHASONE
     Dosage: 4 MG,  CUMULATIVE DOSE TO FIRST REACTION: 1264.0 MG
     Route: 048
     Dates: start: 20210103, end: 20210103
  237. DEXAMETHASONE [Concomitant]
     Active Substance: DEXAMETHASONE
     Dosage: 8 MG,QD, CUMULATIVE DOSE TO FIRST REACTION: 2616.0 MG
     Route: 048
     Dates: start: 20201223, end: 20210102
  238. DEXAMETHASONE [Concomitant]
     Active Substance: DEXAMETHASONE
     Dosage: 8 MG,QD, CUMULATIVE DOSE TO FIRST REACTION: 9920.333 MG
     Route: 048
     Dates: start: 20201223, end: 20210102
  239. DEXAMETHASONE [Concomitant]
     Active Substance: DEXAMETHASONE
     Dosage: 4 MG,  CUMULATIVE DOSE TO FIRST REACTION: 5004.1665 MG
     Route: 048
     Dates: start: 20210103, end: 20210103
  240. HYPROMELLOSES [Concomitant]
     Active Substance: HYPROMELLOSES
     Dosage: UNK
     Route: 065
     Dates: start: 20190410, end: 20190903
  241. ORAMORPH SR SUSTAINED RELEASE [Concomitant]
     Active Substance: MORPHINE SULFATE
     Route: 048
  242. SIMVASTATIN [Concomitant]
     Active Substance: SIMVASTATIN
  243. ERGOCALCIFEROL [Concomitant]
     Active Substance: ERGOCALCIFEROL
  244. MORPHINE SULFATE [Concomitant]
     Active Substance: MORPHINE SULFATE
     Dosage: 10 MILLIGRAM; PHARMACEUTICAL DOSE FORM (FREE TEXT): 245
     Route: 048
  245. METOCLOPRAMIDE [Concomitant]
     Active Substance: METOCLOPRAMIDE
     Dosage: 10 MILLIGRAM; PHARMACEUTICAL DOSE FORM (FREE TEXT): 245
     Route: 048
     Dates: start: 20170620
  246. FILGRASTIM [Concomitant]
     Active Substance: FILGRASTIM
  247. MAGNESIUM [Concomitant]
     Active Substance: MAGNESIUM

REACTIONS (15)
  - Disease progression [Fatal]
  - HER2 positive breast cancer [Fatal]
  - Neuropathy peripheral [Fatal]
  - Coagulopathy [Fatal]
  - Off label use [Unknown]
  - Partial seizures [Recovering/Resolving]
  - Abdominal distension [Recovered/Resolved]
  - Diarrhoea [Recovering/Resolving]
  - Diarrhoea [Recovered/Resolved]
  - Diarrhoea [Recovered/Resolved]
  - Lacrimation increased [Recovered/Resolved]
  - Ejection fraction decreased [Recovered/Resolved]
  - Diarrhoea [Recovered/Resolved]
  - Cough [Recovered/Resolved]
  - Diarrhoea [Recovered/Resolved]

NARRATIVE: CASE EVENT DATE: 20170524
